FAERS Safety Report 7584752-8 (Version None)
Quarter: 2011Q2

REPORT INFORMATION
  Report Type: 
  Country: None (occurrence: None)
  Receive Date: 20110630
  Receipt Date: 20110620
  Transmission Date: 20111010
  Serious: Yes (Hospitalization)
  Sender: FDA-Public Use
  Company Number: PHHY2010MX51231

PATIENT

DRUGS (2)
  1. TRILEPTAL [Suspect]
     Dosage: 4 TABLETS PER DAY (300 MG)
     Route: 048
     Dates: end: 20110501
  2. TRILEPTAL [Suspect]
     Indication: EPILEPSY
     Dosage: 5 DF, QD
     Route: 048
     Dates: start: 20080101

REACTIONS (2)
  - MOVEMENT DISORDER [None]
  - CONVULSION [None]
